FAERS Safety Report 6970179-6 (Version None)
Quarter: 2010Q3

REPORT INFORMATION
  Report Type: 
  Country: None (occurrence: None)
  Receive Date: 20100823
  Receipt Date: 20100524
  Transmission Date: 20110219
  Serious: No
  Sender: FDA-Public Use
  Company Number: 012527

PATIENT
  Sex: Female
  Weight: 89.3 kg

DRUGS (7)
  1. CIMZIA [Suspect]
     Indication: CROHN'S DISEASE
     Dosage: SUBCUTANEOUS
     Route: 058
     Dates: start: 20100324
  2. IMURAN [Concomitant]
  3. METFORMIN [Concomitant]
  4. JANUVIA [Concomitant]
  5. LISINOPRIL [Concomitant]
  6. AMPOLIN [Concomitant]
  7. SYNTHROID [Concomitant]

REACTIONS (5)
  - FATIGUE [None]
  - GASTROINTESTINAL MOTILITY DISORDER [None]
  - GASTROINTESTINAL PAIN [None]
  - ORAL DISCOMFORT [None]
  - RASH [None]
